FAERS Safety Report 20169584 (Version 1)
Quarter: 2021Q4

REPORT INFORMATION
  Report Type: Spontaneous
  Country: KR (occurrence: KR)
  Receive Date: 20211210
  Receipt Date: 20211210
  Transmission Date: 20220303
  Serious: Yes (Hospitalization)
  Sender: FDA-Public Use
  Company Number: KR-ELI_LILLY_AND_COMPANY-KR202112000288

PATIENT
  Sex: Female

DRUGS (1)
  1. TERIPARATIDE [Suspect]
     Active Substance: TERIPARATIDE
     Indication: Spinal compression fracture
     Dosage: UNK UNK, UNKNOWN
     Route: 065

REACTIONS (2)
  - Spinal compression fracture [Unknown]
  - Muscle strain [Unknown]

NARRATIVE: CASE EVENT DATE: 20210101
